FAERS Safety Report 16631928 (Version 1)
Quarter: 2019Q3

REPORT INFORMATION
  Report Type: Spontaneous
  Country: US (occurrence: US)
  Receive Date: 20190725
  Receipt Date: 20190725
  Transmission Date: 20191004
  Serious: No
  Sender: FDA-Public Use
  Company Number: US-GALDERMA-US18034831

PATIENT
  Age: 15 Year
  Sex: Male

DRUGS (9)
  1. PROACTIV GREEN TEA MOISTURIZER [Concomitant]
     Active Substance: COSMETICS
     Indication: ACNE
     Route: 061
     Dates: start: 201806, end: 20180710
  2. PROACTIV MD DAILY OIL CONTROL SPF 30 [Suspect]
     Active Substance: AVOBENZONE\OCTISALATE\OCTOCRYLENE
     Indication: ACNE
     Route: 061
     Dates: start: 201806, end: 20180710
  3. ANTI BIOTIC [Concomitant]
     Indication: ERYTHEMA
  4. PROACTIV DEEP CLEANSING WASH [Concomitant]
     Active Substance: SALICYLIC ACID
     Indication: ACNE
     Route: 061
     Dates: start: 201806, end: 20180710
  5. PROACTIV SKIN PURIFYING MASK [Concomitant]
     Active Substance: SULFUR
     Indication: ACNE
     Route: 061
     Dates: start: 201806, end: 20180710
  6. ANTI BIOTIC [Concomitant]
     Indication: SKIN INFECTION
  7. ANTI BIOTIC [Concomitant]
     Indication: SKIN SWELLING
  8. ANTI BIOTIC [Concomitant]
     Indication: HAEMORRHAGE
  9. PROACTIV MD ADAPALENE ACNE TREATMENT [Suspect]
     Active Substance: ADAPALENE
     Indication: ACNE
     Dosage: 0.1%
     Route: 061
     Dates: start: 201806, end: 20180710

REACTIONS (4)
  - Skin infection [Recovering/Resolving]
  - Erythema [Recovering/Resolving]
  - Haemorrhage [Recovering/Resolving]
  - Skin swelling [Recovering/Resolving]

NARRATIVE: CASE EVENT DATE: 201806
